FAERS Safety Report 5074195-3 (Version None)
Quarter: 2006Q3

REPORT INFORMATION
  Report Type: 
  Country: None (occurrence: None)
  Receive Date: 20060808
  Receipt Date: 20060714
  Transmission Date: 20061208
  Serious: Yes (Other)
  Sender: FDA-Public Use
  Company Number: JP-BRISTOL-MYERS SQUIBB COMPANY-13449202

PATIENT
  Age: 36 Year
  Sex: Male

DRUGS (6)
  1. ABILIFY [Suspect]
     Indication: SCHIZOPHRENIA
     Dosage: DOSAGE: 12 MG 22-JUN-2006 TO 27-JUN-2006; 9 MG 28-JUN-2006 TO 28-JUN-2006
     Route: 048
     Dates: start: 20060622, end: 20060628
  2. ZOPLICONE [Concomitant]
     Route: 048
     Dates: start: 20060618
  3. NITRAZEPAM [Concomitant]
     Route: 048
     Dates: start: 20060618
  4. LACTOMIN [Concomitant]
     Route: 048
     Dates: start: 20060618
  5. OLANZAPINE [Concomitant]
     Route: 048
     Dates: start: 20060628
  6. ELECTROCONVULSIVE THERAPY [Concomitant]

REACTIONS (1)
  - HEPATIC FUNCTION ABNORMAL [None]
